FAERS Safety Report 6322820-9 (Version None)
Quarter: 2009Q3

REPORT INFORMATION
  Report Type: 
  Country: None (occurrence: None)
  Receive Date: 20090824
  Receipt Date: 20090818
  Transmission Date: 20100115
  Serious: Yes (Other)
  Sender: FDA-Public Use
  Company Number: PHHY2009BR34802

PATIENT
  Age: 74 Year
  Sex: Female
  Weight: 47 kg

DRUGS (2)
  1. EXELON [Suspect]
     Indication: DEMENTIA ALZHEIMER'S TYPE
     Dosage: 1.5 MG, 1 CAPSULE IN MORNING AND 1 CAPSULE IN NIGHT
     Route: 048
  2. EXELON [Suspect]
     Dosage: 3 MG, UNK
     Route: 048
     Dates: start: 20090814, end: 20090814

REACTIONS (1)
  - VOMITING [None]
